FAERS Safety Report 5722648-4 (Version None)
Quarter: 2008Q2

REPORT INFORMATION
  Report Type: 
  Country: None (occurrence: None)
  Receive Date: 20080429
  Receipt Date: 20071001
  Transmission Date: 20081010
  Serious: No
  Sender: FDA-Public Use
  Company Number: US-ASTRAZENECA-2007UW22825

PATIENT
  Age: 69 Year
  Sex: Female
  Weight: 78.9 kg

DRUGS (9)
  1. NEXIUM [Suspect]
     Indication: DRY MOUTH
     Route: 048
  2. NEXIUM [Suspect]
     Indication: ABDOMINAL PAIN UPPER
     Route: 048
  3. NEXIUM [Suspect]
     Indication: REGURGITATION
     Route: 048
  4. SYNTHROID [Concomitant]
  5. MEVACOR [Concomitant]
  6. DIOVAN [Concomitant]
  7. CALTRATE [Concomitant]
  8. GERITOL [Concomitant]
  9. ACETYLSALICYLIC ACID SRT [Concomitant]

REACTIONS (1)
  - FAECES DISCOLOURED [None]
